FAERS Safety Report 7153048-0 (Version None)
Quarter: 2010Q4

REPORT INFORMATION
  Report Type: 
  Country: None (occurrence: None)
  Receive Date: 20101213
  Receipt Date: 20101203
  Transmission Date: 20110411
  Serious: Yes (Other)
  Sender: FDA-Public Use
  Company Number: HU-GENZYME-CLOF-1001214

PATIENT
  Sex: Male
  Weight: 18 kg

DRUGS (24)
  1. EVOLTRA [Suspect]
     Indication: ACUTE BIPHENOTYPIC LEUKAEMIA
     Dosage: 50 MG/M2, QDX4
     Route: 042
     Dates: start: 20090429, end: 20090502
  2. BUSILVEX [Suspect]
     Indication: ACUTE BIPHENOTYPIC LEUKAEMIA
     Dosage: 1.1 MG, 2X/W
     Route: 042
     Dates: start: 20090429, end: 20090503
  3. CYCLOPHOSPHAMIDE [Suspect]
     Indication: ACUTE BIPHENOTYPIC LEUKAEMIA
     Dosage: 120 MG/KG, UNK
     Route: 042
     Dates: start: 20090503, end: 20090504
  4. METHOTREXATE [Suspect]
     Indication: ACUTE BIPHENOTYPIC LEUKAEMIA
     Dosage: UNK
     Route: 065
     Dates: start: 20090503, end: 20090504
  5. CYCLOSPORINE [Concomitant]
     Indication: PROPHYLAXIS AGAINST GRAFT VERSUS HOST DISEASE
     Dosage: UNK
     Route: 065
  6. METHOTREXATE [Concomitant]
     Indication: PROPHYLAXIS AGAINST GRAFT VERSUS HOST DISEASE
     Dosage: 10 MG/M2, QD
     Route: 065
     Dates: start: 20090507, end: 20090507
  7. METHOTREXATE [Concomitant]
  8. METHOTREXATE [Concomitant]
     Dosage: 10 MG/M2, QD
     Route: 065
     Dates: start: 20090509, end: 20090509
  9. METHOTREXATE [Concomitant]
  10. METHOTREXATE [Concomitant]
     Dosage: 10 MG/M2, QD
     Route: 065
     Dates: start: 20090512, end: 20090512
  11. METHOTREXATE [Concomitant]
  12. METHOTREXATE [Concomitant]
     Dosage: 10 MG/M2, QD
     Route: 065
     Dates: start: 20090517, end: 20090517
  13. METHOTREXATE [Concomitant]
  14. MEDROL [Concomitant]
     Indication: ASTHMA
     Dosage: 21 MG, QD
     Route: 065
     Dates: end: 20101009
  15. MEDROL [Concomitant]
     Indication: CHRONIC GRAFT VERSUS HOST DISEASE
  16. SILEGON [Concomitant]
     Indication: HEPATIC ENZYME INCREASED
     Dosage: 70 MG, QD
     Route: 048
     Dates: start: 20100218, end: 20100507
  17. PULMICORT [Concomitant]
     Indication: ASTHMA
     Dosage: 100 MG, QD
     Route: 055
  18. PULMICORT [Concomitant]
     Indication: BRONCHITIS
  19. SINGULAIR [Concomitant]
     Indication: ASTHMA
     Dosage: 70 MG, QD
     Route: 048
  20. SINGULAIR [Concomitant]
     Indication: BRONCHITIS
  21. SUMETROLIM [Concomitant]
     Indication: PROPHYLAXIS
     Dosage: 125 MG, 2X/W
     Route: 048
  22. SUMETROLIM [Concomitant]
     Dosage: 25 MG, 2X/W
     Route: 048
  23. CEFIXIME [Concomitant]
     Indication: ASTHMA
     Dosage: 5 MEQ/L, QD
     Route: 048
  24. CEFIXIME [Concomitant]
     Indication: BRONCHITIS

REACTIONS (7)
  - ACUTE GRAFT VERSUS HOST DISEASE IN SKIN [None]
  - ALANINE AMINOTRANSFERASE INCREASED [None]
  - ASPARTATE AMINOTRANSFERASE INCREASED [None]
  - BLOOD CREATININE INCREASED [None]
  - CHRONIC GRAFT VERSUS HOST DISEASE [None]
  - GAMMA-GLUTAMYLTRANSFERASE INCREASED [None]
  - HAEMOGLOBIN DECREASED [None]
